FAERS Safety Report 15122407 (Version 8)
Quarter: 2019Q3

REPORT INFORMATION
  Report Type: Spontaneous
  Country: US (occurrence: US)
  Receive Date: 20180709
  Receipt Date: 20190702
  Transmission Date: 20191004
  Serious: Yes (Other)
  Sender: FDA-Public Use
  Company Number: US-PFIZER INC-2018001953

PATIENT
  Age: 68 Year
  Sex: Female
  Weight: 88.44 kg

DRUGS (6)
  1. LYRICA [Suspect]
     Active Substance: PREGABALIN
     Indication: INFLAMMATION
     Dosage: 75 MG, THREE TIMES A DAY
     Route: 048
     Dates: end: 201807
  2. LYRICA [Suspect]
     Active Substance: PREGABALIN
     Indication: ARTHROPATHY
     Dosage: UNK
     Route: 048
  3. LYRICA [Suspect]
     Active Substance: PREGABALIN
     Indication: TENSION
     Dosage: UNK, 3X/DAY
  4. LYRICA [Suspect]
     Active Substance: PREGABALIN
     Indication: ARTHRITIS
     Dosage: 75 MG, TWO TIMES A DAY
     Route: 048
     Dates: start: 2015
  5. LYRICA [Suspect]
     Active Substance: PREGABALIN
     Indication: BACK DISORDER
     Dosage: 75 MG, UNK
     Route: 048
  6. CELEBREX [Suspect]
     Active Substance: CELECOXIB
     Indication: ARTHRITIS
     Dosage: 200 MG, ONCE A DAY

REACTIONS (8)
  - Hip fracture [Unknown]
  - Arthritis [Unknown]
  - Drug effective for unapproved indication [Unknown]
  - Drug dependence [Unknown]
  - Weight increased [Unknown]
  - Poor quality sleep [Not Recovered/Not Resolved]
  - Feeling abnormal [Unknown]
  - Frustration tolerance decreased [Unknown]

NARRATIVE: CASE EVENT DATE: 2015
